FAERS Safety Report 12767822 (Version 3)
Quarter: 2016Q4

REPORT INFORMATION
  Report Type: Spontaneous
  Country: CR (occurrence: CR)
  Receive Date: 20160921
  Receipt Date: 20161104
  Transmission Date: 20170207
  Serious: No
  Sender: FDA-Public Use
  Company Number: CR-SA-2016SA171655

PATIENT
  Age: 23 Year
  Sex: Female

DRUGS (5)
  1. FOLIC ACID. [Concomitant]
     Active Substance: FOLIC ACID
     Indication: PREGNANCY
     Route: 048
     Dates: start: 201602
  2. IRON [Concomitant]
     Active Substance: IRON
     Indication: PREGNANCY
     Route: 048
     Dates: start: 201602
  3. ARAVA [Suspect]
     Active Substance: LEFLUNOMIDE
     Indication: RHEUMATOID ARTHRITIS
     Route: 048
     Dates: start: 2014, end: 201602
  4. LEVOTHYROXINE. [Concomitant]
     Active Substance: LEVOTHYROXINE
     Indication: HYPOTHYROIDISM
     Route: 048
     Dates: end: 201602
  5. METHOTREXATE. [Concomitant]
     Active Substance: METHOTREXATE
     Indication: RHEUMATOID ARTHRITIS
     Route: 065
     Dates: end: 201602

REACTIONS (3)
  - Exposure during pregnancy [Unknown]
  - Premature labour [Recovered/Resolved]
  - Delivery [Recovered/Resolved]

NARRATIVE: CASE EVENT DATE: 20160924
